FAERS Safety Report 23108788 (Version 2)
Quarter: 2024Q1

REPORT INFORMATION
  Report Type: Other
  Country: DE (occurrence: None)
  Receive Date: 20231026
  Receipt Date: 20240121
  Transmission Date: 20240410
  Serious: Yes (Hospitalization)
  Sender: FDA-Public Use
  Company Number: DE-ROCHE-3442653

PATIENT
  Age: 55 Year
  Sex: Female

DRUGS (14)
  1. OCRELIZUMAB [Suspect]
     Active Substance: OCRELIZUMAB
     Indication: Relapsing multiple sclerosis
     Route: 042
     Dates: start: 20230202
  2. OCRELIZUMAB [Suspect]
     Active Substance: OCRELIZUMAB
     Route: 042
     Dates: start: 20230810
  3. CHOLECALCIFEROL [Concomitant]
     Active Substance: CHOLECALCIFEROL
     Indication: Hypovitaminosis
     Dosage: DOSE: 20000?DOSE FREQUENCY: QS (EVERY WEEK)
     Route: 048
     Dates: start: 20141217
  4. METHYLPREDNISOLONE [Concomitant]
     Active Substance: METHYLPREDNISOLONE
     Dosage: DOSE: 1000?DOSE FREQUENCY: QD (EVERY DAY)
     Route: 042
     Dates: start: 20221221, end: 20221222
  5. PREDNISOLONE [Concomitant]
     Active Substance: PREDNISOLONE
     Dosage: DOSE: 50?DOSE FREQUENCY: QD (EVERY DAY)
     Route: 048
     Dates: start: 20221223, end: 20221230
  6. METAMIZOLE [Concomitant]
     Active Substance: METAMIZOLE
     Indication: Ovarian cyst
     Dosage: DOSE: 30 DROP?DOSE FREQUENCY: QID (4 TIMES A DAY)
     Route: 048
     Dates: start: 20230915, end: 202309
  7. METHYPRED [Concomitant]
     Indication: Prophylaxis
     Dosage: DOSE FREQUENCY: ONCE
     Route: 042
     Dates: start: 20230202, end: 20230202
  8. DIMETHINDENE MALEATE [Concomitant]
     Active Substance: DIMETHINDENE MALEATE
     Dosage: DOSE FREQUENCY: ONCE
     Route: 042
     Dates: start: 20230202, end: 20230202
  9. DIMETHINDENE MALEATE [Concomitant]
     Active Substance: DIMETHINDENE MALEATE
     Dosage: DOSE FREQUENCY: ONCE
     Route: 042
     Dates: start: 20230216, end: 20230216
  10. DIMETHINDENE MALEATE [Concomitant]
     Active Substance: DIMETHINDENE MALEATE
     Dosage: DOSE FREQUENCY: ONCE
     Route: 042
     Dates: start: 20230810, end: 20230810
  11. METHYLPREDNISOLONE [Concomitant]
     Active Substance: METHYLPREDNISOLONE
     Dosage: DOSE FREQUENCY: ONCE
     Route: 042
     Dates: start: 20230216, end: 20230216
  12. ACETAMINOPHEN [Concomitant]
     Active Substance: ACETAMINOPHEN
     Dosage: DOSE: 500?DOSE FREQUENCY: TID (3 TIMES A DAY)
     Route: 048
     Dates: start: 20230922, end: 20231001
  13. THYMIVERLAN [Concomitant]
     Dosage: DOSE: 20 DROPS?DOSE FREQUENCY: BID (TWICE A DAY)
     Route: 048
     Dates: start: 20230922, end: 20231001
  14. XYLOMETAZOLINE HYDROCHLORIDE [Concomitant]
     Active Substance: XYLOMETAZOLINE HYDROCHLORIDE
     Dosage: DOSE: 1?DOSE FREQUENCY: TID (3 TIMES A DAY)
     Route: 055
     Dates: start: 20230922, end: 20231001

REACTIONS (2)
  - COVID-19 [Recovered/Resolved]
  - Ovarian cyst [Recovered/Resolved]

NARRATIVE: CASE EVENT DATE: 20230915
